FAERS Safety Report 9695173 (Version 2)
Quarter: 2013Q4

REPORT INFORMATION
  Report Type: Spontaneous
  Country: US (occurrence: US)
  Receive Date: 20131119
  Receipt Date: 20131120
  Transmission Date: 20140711
  Serious: No
  Sender: FDA-Public Use
  Company Number: US-009507513-1311USA004218

PATIENT
  Sex: Male

DRUGS (5)
  1. SAPHRIS [Suspect]
     Indication: BIPOLAR DISORDER
     Dosage: 10 MG, ^ONCE DAILY IN THE EVENING^
     Route: 060
     Dates: start: 201307, end: 201311
  2. CLORAZEPATE DIPOTASSIUM [Concomitant]
     Dosage: UNK
     Dates: end: 201311
  3. PRISTIQ [Concomitant]
     Dosage: UNK
     Dates: end: 201311
  4. PROPRANOLOL HYDROCHLORIDE [Concomitant]
     Dosage: UNK
     Dates: end: 201311
  5. LITHIUM [Concomitant]
     Dosage: UNK

REACTIONS (7)
  - Drug withdrawal syndrome [Unknown]
  - Hyperhidrosis [Unknown]
  - Panic attack [Unknown]
  - Nervousness [Unknown]
  - Balance disorder [Unknown]
  - Fatigue [Unknown]
  - Blood glucose increased [Unknown]
